FAERS Safety Report 12205627 (Version 3)
Quarter: 2016Q2

REPORT INFORMATION
  Report Type: Spontaneous
  Country: JP (occurrence: JP)
  Receive Date: 20160323
  Receipt Date: 20160601
  Transmission Date: 20160815
  Serious: Yes (Hospitalization, Other)
  Sender: FDA-Public Use
  Company Number: JP-AMGEN-JPNSP2016034950

PATIENT
  Age: 84 Year
  Sex: Male
  Weight: 48 kg

DRUGS (3)
  1. MECOBALAMIN [Suspect]
     Active Substance: METHYLCOBALAMIN
     Indication: NEUROPATHY PERIPHERAL
     Dosage: 1 MG, 2X/DAY
     Route: 048
     Dates: start: 20150414, end: 20160409
  2. ENBREL [Suspect]
     Active Substance: ETANERCEPT
     Indication: RHEUMATOID ARTHRITIS
     Dosage: UNK UNK, WEEKLY
     Route: 058
     Dates: start: 20141107, end: 20160316
  3. RABEPRAZOLE NA [Concomitant]
     Active Substance: RABEPRAZOLE SODIUM
     Indication: GASTROOESOPHAGEAL REFLUX DISEASE
     Dosage: 10 MG, 1X/DAY
     Route: 048
     Dates: start: 20140926

REACTIONS (3)
  - Drug-induced liver injury [Recovering/Resolving]
  - Benign prostatic hyperplasia [Unknown]
  - Liver function test abnormal [Recovered/Resolved]

NARRATIVE: CASE EVENT DATE: 20160311
